FAERS Safety Report 10310126 (Version 1)
Quarter: 2014Q3

REPORT INFORMATION
  Report Type: Report from Study
  Country: US (occurrence: US)
  Receive Date: 20140717
  Receipt Date: 20140717
  Transmission Date: 20150326
  Serious: Yes (Death, Other)
  Sender: FDA-Public Use
  Company Number: US-JNJFOC-20140710408

PATIENT
  Sex: Male

DRUGS (1)
  1. REMICADE [Suspect]
     Active Substance: INFLIXIMAB
     Indication: PSORIASIS
     Route: 042

REACTIONS (5)
  - Death [Fatal]
  - Infection [Not Recovered/Not Resolved]
  - Diabetes mellitus [Unknown]
  - Cardiac disorder [Unknown]
  - Sepsis [Not Recovered/Not Resolved]
